FAERS Safety Report 18180974 (Version 1)
Quarter: 2020Q3

REPORT INFORMATION
  Report Type: Spontaneous
  Country: US (occurrence: US)
  Receive Date: 20200821
  Receipt Date: 20200821
  Transmission Date: 20201103
  Serious: Yes (Other)
  Sender: FDA-Public Use
  Company Number: US-ASTELLAS-2020US028186

PATIENT
  Age: 28 Year
  Sex: Female

DRUGS (2)
  1. GILTERITINIB [Suspect]
     Active Substance: GILTERITINIB
     Indication: ACUTE MYELOID LEUKAEMIA REFRACTORY
     Route: 048
  2. GILTERITINIB [Suspect]
     Active Substance: GILTERITINIB
     Route: 048

REACTIONS (2)
  - Intentional overdose [Unknown]
  - Acute macular outer retinopathy [Recovering/Resolving]
